FAERS Safety Report 15646002 (Version 1)
Quarter: 2018Q4

REPORT INFORMATION
  Report Type: Spontaneous
  Country: US (occurrence: US)
  Receive Date: 20181121
  Receipt Date: 20181121
  Transmission Date: 20190205
  Serious: No
  Sender: FDA-Public Use
  Company Number: US-UNITED THERAPEUTICS-UNT-2018-018629

PATIENT
  Age: 72 Year
  Sex: Female

DRUGS (3)
  1. REMODULIN [Suspect]
     Active Substance: TREPROSTINIL
     Dosage: 0.0076 ?G/KG, CONTINUING
     Route: 041
  2. REMODULIN [Suspect]
     Active Substance: TREPROSTINIL
     Indication: PRODUCT USED FOR UNKNOWN INDICATION
     Dosage: 0.0084 ?G/KG, CONTINUING
     Route: 041
     Dates: start: 20181029
  3. REMODULIN [Suspect]
     Active Substance: TREPROSTINIL
     Dosage: 0.0086 ?G/KG, CONTINUING
     Route: 041
     Dates: start: 20181116, end: 20181120

REACTIONS (3)
  - International normalised ratio increased [Unknown]
  - Dyspnoea [Unknown]
  - Headache [Unknown]

NARRATIVE: CASE EVENT DATE: 2018
